FAERS Safety Report 11497110 (Version 1)
Quarter: 2015Q3

REPORT INFORMATION
  Report Type: Report from Study
  Country: US (occurrence: US)
  Receive Date: 20150911
  Receipt Date: 20150911
  Transmission Date: 20151125
  Serious: Yes (Death, Other)
  Sender: FDA-Public Use
  Company Number: US-JNJFOC-20150907943

PATIENT
  Age: 76 Year
  Sex: Male

DRUGS (6)
  1. ELIQUIS [Suspect]
     Active Substance: APIXABAN
     Indication: PRODUCT USED FOR UNKNOWN INDICATION
  2. IMBRUVICA [Suspect]
     Active Substance: IBRUTINIB
     Indication: LYMPHOMA
     Route: 048
     Dates: start: 20150704, end: 2015
  3. TAMSULOSIN [Concomitant]
     Active Substance: TAMSULOSIN
  4. HCTZ [Concomitant]
     Active Substance: HYDROCHLOROTHIAZIDE
  5. ALLOPURINOL. [Concomitant]
     Active Substance: ALLOPURINOL
  6. VERAPAMIL [Concomitant]
     Active Substance: VERAPAMIL HYDROCHLORIDE

REACTIONS (9)
  - Death [Fatal]
  - Aphasia [Unknown]
  - Cerebral haemorrhage [Unknown]
  - Pain [Unknown]
  - Off label use [Unknown]
  - Head injury [Unknown]
  - Fall [Unknown]
  - Dizziness [Unknown]
  - Headache [Unknown]

NARRATIVE: CASE EVENT DATE: 2015
